FAERS Safety Report 7438131-4 (Version None)
Quarter: 2011Q2

REPORT INFORMATION
  Report Type: 
  Country: None (occurrence: None)
  Receive Date: 20110426
  Receipt Date: 20110418
  Transmission Date: 20111010
  Serious: Yes (Hospitalization, Other)
  Sender: FDA-Public Use
  Company Number: SE-PFIZER INC-2011084071

PATIENT
  Age: 74 Year
  Sex: Male

DRUGS (11)
  1. DOLCONTIN [Concomitant]
     Dosage: UNK
  2. MINDIAB [Suspect]
     Indication: DIABETES MELLITUS
     Dosage: 5 MG DAILY
     Route: 048
  3. ACETAMINOPHEN [Concomitant]
     Dosage: UNK
  4. GLUCOPHAGE [Suspect]
     Indication: DIABETES MELLITUS
     Dosage: 1.5 G DAILY
     Route: 048
  5. MOVIPREP [Concomitant]
     Dosage: UNK
  6. GABAPENTIN [Suspect]
     Dosage: 600 MG, DAILY
     Route: 048
  7. MIANSERIN [Suspect]
     Dosage: 5 MG, DAILY
     Route: 048
  8. LITHIONIT [Suspect]
     Dosage: 126 MG, DAILY
     Route: 048
  9. PRIMPERAN TAB [Concomitant]
     Dosage: UNK
  10. TARCEVA [Concomitant]
     Dosage: UNK
  11. TETRALYSAL [Concomitant]
     Dosage: UNK

REACTIONS (6)
  - LACTIC ACIDOSIS [None]
  - DEHYDRATION [None]
  - TOXICITY TO VARIOUS AGENTS [None]
  - DEPRESSED LEVEL OF CONSCIOUSNESS [None]
  - RENAL FAILURE [None]
  - PNEUMONIA PNEUMOCOCCAL [None]
